FAERS Safety Report 24839056 (Version 2)
Quarter: 2025Q1

REPORT INFORMATION
  Report Type: Spontaneous
  Country: BR (occurrence: BR)
  Receive Date: 20250114
  Receipt Date: 20250125
  Transmission Date: 20250409
  Serious: Yes (Other)
  Sender: TORRENT PHARMA INC.
  Company Number: BR-TORRENT-00006350

PATIENT
  Age: 40 Year
  Sex: Female
  Weight: 50 kg

DRUGS (1)
  1. TRAZODONE [Suspect]
     Active Substance: TRAZODONE HYDROCHLORIDE
     Indication: Depression
     Dosage: 1 TABLET AT NIGHT
     Route: 048
     Dates: start: 202408, end: 20250101

REACTIONS (13)
  - Constipation [Not Recovered/Not Resolved]
  - Coeliac disease [Not Recovered/Not Resolved]
  - Dermatitis herpetiformis [Not Recovered/Not Resolved]
  - Pruritus [Not Recovered/Not Resolved]
  - Anaemia [Not Recovered/Not Resolved]
  - Malabsorption [Not Recovered/Not Resolved]
  - Abdominal discomfort [Not Recovered/Not Resolved]
  - Abdominal distension [Not Recovered/Not Resolved]
  - Drug ineffective for unapproved indication [Unknown]
  - Therapy cessation [Unknown]
  - Insomnia [Unknown]
  - Pain [Unknown]
  - Tension [Unknown]

NARRATIVE: CASE EVENT DATE: 20240601
